FAERS Safety Report 9000437 (Version 1)
Quarter: 2013Q1

REPORT INFORMATION
  Report Type: Spontaneous
  Country: US (occurrence: None)
  Receive Date: 20130102
  Receipt Date: 20130102
  Transmission Date: 20140127
  Serious: Yes (Other)
  Sender: FDA-Public Use
  Company Number: None

PATIENT
  Sex: Female
  Weight: 82.1 kg

DRUGS (1)
  1. LEVOTHYROXIN [Suspect]
     Indication: HYPOTHYROIDISM
     Dosage: 200 MG DAILY ORAL
     Route: 048

REACTIONS (1)
  - Thyroid function test abnormal [None]
